FAERS Safety Report 5219464-9 (Version None)
Quarter: 2007Q1

REPORT INFORMATION
  Report Type: 
  Country: None (occurrence: None)
  Receive Date: 20070124
  Receipt Date: 20070124
  Transmission Date: 20070707
  Serious: Yes (Other)
  Sender: FDA-Public Use
  Company Number: None

PATIENT
  Age: 81 Year
  Sex: Male
  Weight: 65.3 kg

DRUGS (7)
  1. PRAVACHOL [Suspect]
  2. FELODIPINE [Concomitant]
  3. METOPROLOL TARTRATE [Concomitant]
  4. LACTASE [Concomitant]
  5. LISINOPRIL [Concomitant]
  6. RANITIDINE HCL [Concomitant]
  7. FLUNISOLIDE NASAL INH SPRAY [Concomitant]

REACTIONS (1)
  - ABDOMINAL DISCOMFORT [None]
